FAERS Safety Report 5507523-2 (Version None)
Quarter: 2007Q4

REPORT INFORMATION
  Report Type: 
  Country: None (occurrence: None)
  Receive Date: 20071105
  Receipt Date: 20071105
  Transmission Date: 20080405
  Serious: Yes (Other)
  Sender: FDA-Public Use
  Company Number: None

PATIENT
  Sex: Male

DRUGS (10)
  1. REVLIMID [Suspect]
     Indication: MULTIPLE MYELOMA
     Dosage: 25MG  DAILY  X21D/28D   PO
     Route: 048
     Dates: start: 20070904, end: 20071010
  2. DEXAMETHASONE [Concomitant]
  3. VELCADE [Concomitant]
  4. PROCRIT [Concomitant]
  5. LISINOPRIL [Concomitant]
  6. ASPIRIN [Concomitant]
  7. TEMAZEPAM [Concomitant]
  8. LEVOTHROID [Concomitant]
  9. OMEPRAZOLE [Concomitant]
  10. PROCHLORPERAZINE [Concomitant]

REACTIONS (3)
  - FATIGUE [None]
  - NEUTROPHIL COUNT DECREASED [None]
  - PLATELET COUNT DECREASED [None]
